FAERS Safety Report 7949509-4 (Version None)
Quarter: 2011Q4

REPORT INFORMATION
  Report Type: 
  Country: None (occurrence: None)
  Receive Date: 20111130
  Receipt Date: 20111013
  Transmission Date: 20120403
  Serious: Yes (Hospitalization, Other)
  Sender: FDA-Public Use
  Company Number: US-BAYER-2011-027005

PATIENT
  Age: 46 Year
  Sex: Female
  Weight: 56.689 kg

DRUGS (4)
  1. NSAID'S [Concomitant]
  2. ANTIHYPERTENSIVES [Concomitant]
  3. YAZ [Suspect]
  4. ASCORBIC ACID [Concomitant]

REACTIONS (8)
  - MUSCULAR WEAKNESS [None]
  - ANXIETY [None]
  - ANHEDONIA [None]
  - EMOTIONAL DISTRESS [None]
  - INJURY [None]
  - DEEP VEIN THROMBOSIS [None]
  - GENERAL PHYSICAL HEALTH DETERIORATION [None]
  - PAIN [None]
